FAERS Safety Report 16566044 (Version 1)
Quarter: 2019Q3

REPORT INFORMATION
  Report Type: Spontaneous
  Country: DE (occurrence: DE)
  Receive Date: 20190712
  Receipt Date: 20190712
  Transmission Date: 20191004
  Serious: Yes (Death, Hospitalization)
  Sender: FDA-Public Use
  Company Number: DE-PFIZER INC-2019293287

PATIENT
  Age: 94 Year
  Sex: Female

DRUGS (16)
  1. CANDESARTAN CILEXETIL. [Suspect]
     Active Substance: CANDESARTAN CILEXETIL
     Dosage: 16 MG, 2X/DAY (1-0-1)
     Route: 048
  2. BELOC-ZOK COMP [Suspect]
     Active Substance: HYDROCHLOROTHIAZIDE\METOPROLOL SUCCINATE
     Dosage: 47.5 MG, 1X/DAY (1-0-0)
     Route: 048
  3. VERRUMAL [DIMETHYL SULFOXIDE;FLUOROURACIL;SALICYLIC ACID] [Concomitant]
     Dosage: UNK (EVERY 3 DAYS)
  4. ARTELAC [HYPROMELLOSE] [Concomitant]
     Dosage: 1-1-1, DROPS
     Route: 047
  5. LAXOBERAL [Concomitant]
     Active Substance: SODIUM PICOSULFATE
     Dosage: 3 TIMES A WEEK, DROPS
     Route: 048
  6. ELIQUIS [Concomitant]
     Active Substance: APIXABAN
     Dosage: 2.5 MG, 1-0-1
     Route: 048
  7. OMEPRAZOL [Concomitant]
     Active Substance: OMEPRAZOLE
     Dosage: 20 MG, 2-0-0
     Route: 048
  8. MAGNESIUM [Concomitant]
     Active Substance: MAGNESIUM
     Dosage: UNK (1-0-0)
     Route: 048
  9. NOVALGIN (METAMIZOLE SODIUM) [Suspect]
     Active Substance: METAMIZOLE SODIUM
     Dosage: 500 MG, 4X/DAY (1-1-1-1)
     Route: 048
  10. MOVICOL [Concomitant]
     Active Substance: POLYETHYLENE GLYCOL 3350\POTASSIUM CHLORIDE\SODIUM BICARBONATE\SODIUM CHLORIDE
     Dosage: 1-0-0, POWDER
     Route: 048
  11. L-THYROXIN [LEVOTHYROXINE SODIUM] [Concomitant]
     Dosage: 25 UG, DAILY (1-0-0)
     Route: 048
  12. LASIX [Suspect]
     Active Substance: FUROSEMIDE
     Dosage: 40 MG, 1-1/2-0, TABLET
     Route: 048
  13. AMLODIPINE BESILATE [Suspect]
     Active Substance: AMLODIPINE BESYLATE
     Dosage: 5 MG, 3X/DAY (1-1-1)
     Route: 048
  14. MIRTAZAPIN [Concomitant]
     Active Substance: MIRTAZAPINE
     Dosage: 15 MG, 0-0-0-1
     Route: 048
  15. LYRICA [Concomitant]
     Active Substance: PREGABALIN
     Dosage: 75 MG, 1-0-1
     Route: 048
  16. VIGANTOLETTEN [Concomitant]
     Active Substance: CHOLECALCIFEROL
     Dosage: 1000 IE, 1-0-0
     Route: 048

REACTIONS (5)
  - Death [Fatal]
  - Oedema peripheral [Unknown]
  - Medication error [Unknown]
  - Off label use [Unknown]
  - Dyspnoea [Unknown]
